FAERS Safety Report 5131342-2 (Version None)
Quarter: 2006Q4

REPORT INFORMATION
  Report Type: 
  Country: None (occurrence: None)
  Receive Date: 20061016
  Receipt Date: 20061004
  Transmission Date: 20070319
  Serious: Yes (Other)
  Sender: FDA-Public Use
  Company Number: 2006121891

PATIENT
  Age: 43 Year
  Sex: Female
  Weight: 78.9259 kg

DRUGS (5)
  1. ALPRAZOLAM [Suspect]
     Indication: ANXIETY DISORDER
     Dosage: 0.5 MG (0.25 MG, 2 IN 1 D)
     Dates: start: 20050301
  2. PROPRANOLOL [Concomitant]
  3. SPIRONOLACTONE [Concomitant]
  4. NEXIUM [Concomitant]
  5. ANTIBIOTICS (ANTIBIOTICS) [Concomitant]

REACTIONS (12)
  - BLOOD GLUCOSE INCREASED [None]
  - BLOOD SODIUM DECREASED [None]
  - BLOOD TRIGLYCERIDES INCREASED [None]
  - CARBON DIOXIDE DECREASED [None]
  - FLUSHING [None]
  - HAEMOGLOBIN INCREASED [None]
  - HEART RATE INCREASED [None]
  - HIGH DENSITY LIPOPROTEIN DECREASED [None]
  - RED BLOOD CELL COUNT INCREASED [None]
  - SOMNOLENCE [None]
  - TREMOR [None]
  - VERY LOW DENSITY LIPOPROTEIN INCREASED [None]
